FAERS Safety Report 11342152 (Version 6)
Quarter: 2016Q1

REPORT INFORMATION
  Report Type: Report from Study
  Country: CA (occurrence: CA)
  Receive Date: 20150805
  Receipt Date: 20160129
  Transmission Date: 20160525
  Serious: Yes (Hospitalization, Other)
  Sender: FDA-Public Use
  Company Number: CA-ABBVIE-15K-028-1427916-00

PATIENT
  Sex: Female

DRUGS (2)
  1. IMURAN [Concomitant]
     Active Substance: AZATHIOPRINE
     Indication: PRODUCT USED FOR UNKNOWN INDICATION
     Route: 048
  2. HUMIRA [Suspect]
     Active Substance: ADALIMUMAB
     Indication: CROHN^S DISEASE
     Route: 058
     Dates: start: 20150306

REACTIONS (10)
  - Colostomy [Unknown]
  - Postoperative wound complication [Recovering/Resolving]
  - Drug ineffective [Not Recovered/Not Resolved]
  - Small intestinal obstruction [Recovering/Resolving]
  - Oral herpes [Recovering/Resolving]
  - Hot flush [Unknown]
  - Pyrexia [Unknown]
  - Gastrointestinal infection [Unknown]
  - Suture rupture [Unknown]
  - Crohn^s disease [Unknown]

NARRATIVE: CASE EVENT DATE: 2015
